FAERS Safety Report 8979678 (Version 2)
Quarter: 2013Q1

REPORT INFORMATION
  Report Type: Report from Study
  Country: AR (occurrence: AR)
  Receive Date: 20121221
  Receipt Date: 20130305
  Transmission Date: 20140127
  Serious: Yes (Other)
  Sender: FDA-Public Use
  Company Number: AR-ABBOTT-12P-007-1022474-00

PATIENT
  Age: 58 Year
  Sex: Female

DRUGS (1)
  1. HUMIRA [Suspect]
     Indication: RHEUMATOID ARTHRITIS
     Route: 058
     Dates: start: 20110915

REACTIONS (4)
  - Bronchiectasis [Not Recovered/Not Resolved]
  - Pneumonia [Recovered/Resolved]
  - Snoring [Unknown]
  - Anosmia [Not Recovered/Not Resolved]
